FAERS Safety Report 8226302-9 (Version None)
Quarter: 2012Q1

REPORT INFORMATION
  Report Type: 
  Country: None (occurrence: None)
  Receive Date: 20120321
  Receipt Date: 20120314
  Transmission Date: 20120608
  Serious: No
  Sender: FDA-Public Use
  Company Number: US-MERCK-1202USA03622

PATIENT
  Age: 69 Year
  Sex: Female

DRUGS (7)
  1. FERROUS SULFATE [Concomitant]
     Route: 065
  2. VITAMINS (UNSPECIFIED) [Concomitant]
     Route: 065
  3. VITAMIN D (UNSPECIFIED) [Concomitant]
     Route: 065
  4. XALATAN [Concomitant]
     Route: 065
  5. JANUVIA [Suspect]
     Indication: TYPE 2 DIABETES MELLITUS
     Route: 048
     Dates: start: 20090101
  6. LANTUS [Concomitant]
     Route: 065
  7. ALTACE [Concomitant]
     Route: 065

REACTIONS (3)
  - DIABETES MELLITUS [None]
  - MICROALBUMINURIA [None]
  - GLOMERULAR FILTRATION RATE DECREASED [None]
